FAERS Safety Report 9506251 (Version 1)
Quarter: 2013Q1

REPORT INFORMATION
  Report Type: Spontaneous
  Country: US (occurrence: None)
  Receive Date: 20130301
  Receipt Date: 20130301
  Transmission Date: 20140127
  Serious: Yes (Hospitalization)
  Sender: FDA-Public Use
  Company Number: PHEH2012US004628

PATIENT
  Age: 22 Year
  Sex: Male

DRUGS (2)
  1. CARBAMAZEPINE (CARBAMAZEPINE) UNKNOWN [Suspect]
     Indication: CONVULSION
  2. TEGRETOL [Suspect]

REACTIONS (2)
  - Convulsion [None]
  - Drug intolerance [None]
